FAERS Safety Report 9436711 (Version 2)
Quarter: 2013Q3

REPORT INFORMATION
  Report Type: Spontaneous
  Country: FR (occurrence: FR)
  Receive Date: 20130802
  Receipt Date: 20130812
  Transmission Date: 20140515
  Serious: Yes (Life-Threatening)
  Sender: FDA-Public Use
  Company Number: FR-JNJFOC-20130716293

PATIENT
  Age: 80 Year
  Sex: Female

DRUGS (1)
  1. DUROGESIC [Suspect]
     Indication: ARTHRALGIA
     Route: 062
     Dates: start: 20130626, end: 20130627

REACTIONS (3)
  - Renal failure acute [Recovered/Resolved]
  - Hypercapnic coma [Recovered/Resolved]
  - Hyperkalaemia [Unknown]
